FAERS Safety Report 8611388-X (Version None)
Quarter: 2012Q3

REPORT INFORMATION
  Report Type: 
  Country: None (occurrence: None)
  Receive Date: 20120822
  Receipt Date: 20120816
  Transmission Date: 20120928
  Serious: Yes (Hospitalization)
  Sender: FDA-Public Use
  Company Number: AR-PFIZER INC-2012190938

PATIENT
  Age: 41 Year
  Sex: Female

DRUGS (2)
  1. DEXA-RHINASPRAY [Concomitant]
     Indication: NASOPHARYNGITIS
     Dosage: UNK
  2. IBUPROFEN [Suspect]
     Indication: BURSITIS
     Dosage: UNK
     Route: 048
     Dates: start: 20120101, end: 20120101

REACTIONS (1)
  - HYPONATRAEMIA [None]
